FAERS Safety Report 8597586-2 (Version None)
Quarter: 2012Q3

REPORT INFORMATION
  Report Type: 
  Country: None (occurrence: None)
  Receive Date: 20120816
  Receipt Date: 20120808
  Transmission Date: 20120928
  Serious: Yes (Hospitalization)
  Sender: FDA-Public Use
  Company Number: US-BAYER-2011-075232

PATIENT
  Age: 19 Year
  Sex: Female
  Weight: 113.38 kg

DRUGS (1)
  1. YASMIN [Suspect]
     Indication: PREMENSTRUAL SYNDROME
     Dosage: UNK
     Dates: start: 20050101, end: 20060101

REACTIONS (3)
  - GALLBLADDER INJURY [None]
  - INJURY [None]
  - CHOLECYSTITIS [None]
